FAERS Safety Report 5334019-3 (Version None)
Quarter: 2007Q2

REPORT INFORMATION
  Report Type: 
  Country: None (occurrence: None)
  Receive Date: 20070524
  Receipt Date: 20070515
  Transmission Date: 20071010
  Serious: Yes (Hospitalization, Other)
  Sender: FDA-Public Use
  Company Number: FR-PFIZER INC-2007039573

PATIENT
  Sex: Female

DRUGS (2)
  1. TAHOR [Suspect]
     Route: 048
  2. OFLOCET [Concomitant]

REACTIONS (1)
  - CYTOLYTIC HEPATITIS [None]
